FAERS Safety Report 20060224 (Version 3)
Quarter: 2021Q4

REPORT INFORMATION
  Report Type: Spontaneous
  Country: BE (occurrence: BE)
  Receive Date: 20211111
  Receipt Date: 20211214
  Transmission Date: 20220303
  Serious: Yes (Life-Threatening, Hospitalization, Other)
  Sender: FDA-Public Use
  Company Number: BE-AMGEN-BELSP2021174893

PATIENT

DRUGS (4)
  1. ADALIMUMAB [Suspect]
     Active Substance: ADALIMUMAB
     Indication: Inflammatory bowel disease
     Dosage: UNK
     Route: 065
  2. APREMILAST [Suspect]
     Active Substance: APREMILAST
     Indication: Inflammatory bowel disease
     Dosage: UNK
     Route: 065
  3. METHOTREXATE [Concomitant]
     Active Substance: METHOTREXATE
  4. MYCOPHENOLATE MOFETIL [Concomitant]
     Active Substance: MYCOPHENOLATE MOFETIL

REACTIONS (15)
  - Angioedema [Unknown]
  - Cholangitis sclerosing [Recovered/Resolved]
  - Inflammatory bowel disease [Unknown]
  - Acanthoma [Unknown]
  - Campylobacter colitis [Unknown]
  - Condition aggravated [Unknown]
  - Oesophageal candidiasis [Unknown]
  - Osteomyelitis [Recovered/Resolved]
  - Atrial fibrillation [Unknown]
  - Ankle fracture [Unknown]
  - Drug intolerance [Unknown]
  - Therapeutic product effect incomplete [Unknown]
  - Viral upper respiratory tract infection [Unknown]
  - Therapy non-responder [Unknown]
  - Therapeutic product effect decreased [Unknown]
